FAERS Safety Report 21556720 (Version 4)
Quarter: 2023Q1

REPORT INFORMATION
  Report Type: Report from Study
  Country: PL (occurrence: PL)
  Receive Date: 20221104
  Receipt Date: 20230208
  Transmission Date: 20230417
  Serious: Yes (Hospitalization, Other)
  Sender: FDA-Public Use
  Company Number: PL-BRISTOL-MYERS SQUIBB COMPANY-2022-129358

PATIENT
  Age: 28 Year
  Sex: Female
  Weight: 67 kg

DRUGS (14)
  1. MESALAMINE [Concomitant]
     Active Substance: MESALAMINE
     Indication: Urticaria cholinergic
     Route: 048
     Dates: start: 201806
  2. MESALAMINE [Concomitant]
     Active Substance: MESALAMINE
     Indication: Product used for unknown indication
  3. ANGELIQ [Concomitant]
     Active Substance: DROSPIRENONE\ESTRADIOL
     Indication: Contraception
     Route: 048
     Dates: start: 2016
  4. OPTYLITE [Concomitant]
     Indication: Electrolyte imbalance
     Route: 042
     Dates: start: 20221020, end: 20221026
  5. OPTYLITE [Concomitant]
     Indication: Prophylaxis
  6. KETOPROFEN [Concomitant]
     Active Substance: KETOPROFEN
     Indication: Pain
     Dosage: 0.1 G/ 2 ML
     Route: 042
     Dates: start: 20221020, end: 20221020
  7. SODIUM CHLORIDE [Concomitant]
     Active Substance: SODIUM CHLORIDE
     Indication: Product used for unknown indication
     Dosage: 9 MG/ML
     Route: 042
     Dates: start: 20221020, end: 20221026
  8. SODIUM CHLORIDE [Concomitant]
     Active Substance: SODIUM CHLORIDE
     Indication: Product used for unknown indication
     Dosage: 9 MG/ML
     Route: 042
     Dates: start: 20221020, end: 20221026
  9. MANNITOL [Concomitant]
     Active Substance: MANNITOL
     Indication: Product used for unknown indication
     Dosage: 200 MG/ML
     Dates: start: 20221020, end: 20221024
  10. KODAN TINKTUR FORTE [Concomitant]
     Indication: Infection prophylaxis
     Dosage: 500 ML
     Dates: start: 20221021, end: 20221021
  11. LIDOCAINE HYDROCHLORIDE [Concomitant]
     Active Substance: LIDOCAINE HYDROCHLORIDE
     Indication: Product used for unknown indication
     Dosage: 0.01G/ML
     Route: 042
     Dates: start: 20221022, end: 20221022
  12. KODAN TINKTUR FORTE [Concomitant]
     Indication: Product used for unknown indication
     Dates: start: 20221021, end: 20221021
  13. LIGNOC HYDROCHL [Concomitant]
     Indication: Product used for unknown indication
     Dosage: 0.01G/1ML
     Route: 042
     Dates: start: 20221022, end: 20221022
  14. KALIUM EFFERVESCENS [Concomitant]
     Indication: Product used for unknown indication
     Dosage: 0.782 GK+3G
     Route: 042
     Dates: start: 20221021

REACTIONS (2)
  - Epilepsy [Recovered/Resolved with Sequelae]
  - Hemiplegia [Recovered/Resolved]

NARRATIVE: CASE EVENT DATE: 20221020
